FAERS Safety Report 8909730 (Version 2)
Quarter: 2012Q4

REPORT INFORMATION
  Report Type: 
  Country: FR (occurrence: FR)
  Receive Date: 20121115
  Receipt Date: 20121120
  Transmission Date: 20130627
  Serious: Yes (Other)
  Sender: FDA-Public Use
  Company Number: FR-PFIZER INC-2012282496

PATIENT
  Sex: Male

DRUGS (3)
  1. LYRICA [Suspect]
     Dosage: 25 mg, UNK
     Dates: start: 201210
  2. LYRICA [Suspect]
     Dosage: 50 mg, UNK
     Dates: start: 20121108
  3. MORPHINE [Concomitant]
     Dosage: UNK
     Dates: start: 2005

REACTIONS (7)
  - Rectal haemorrhage [Unknown]
  - Faeces hard [Unknown]
  - Pain in extremity [Unknown]
  - Gamma-glutamyltransferase increased [Unknown]
  - Hyperhidrosis [Unknown]
  - Depressed mood [Unknown]
  - Depression [Unknown]
